FAERS Safety Report 14785982 (Version 1)
Quarter: 2018Q2

REPORT INFORMATION
  Report Type: Spontaneous
  Country: US (occurrence: US)
  Receive Date: 20180421
  Receipt Date: 20180421
  Transmission Date: 20180711
  Serious: No
  Sender: FDA-Public Use
  Company Number: US-DUCHESNAY INC.-2017US017978

PATIENT
  Age: 64 Year
  Sex: Female

DRUGS (1)
  1. OSPHENA [Suspect]
     Active Substance: OSPEMIFENE
     Indication: PRODUCT USED FOR UNKNOWN INDICATION
     Dosage: 60 MG, DAILY
     Route: 065
     Dates: start: 20171115, end: 20171209

REACTIONS (2)
  - Vaginal discharge [Recovering/Resolving]
  - Vaginal odour [Recovering/Resolving]

NARRATIVE: CASE EVENT DATE: 20171115
